FAERS Safety Report 4287857-2 (Version None)
Quarter: 2004Q1

REPORT INFORMATION
  Report Type: 
  Country: None (occurrence: None)
  Receive Date: 20040209
  Receipt Date: 20031013
  Transmission Date: 20041129
  Serious: No
  Sender: FDA-Public Use
  Company Number: US-GLAXOSMITHKLINE-A0430021A

PATIENT
  Age: 37 Year
  Sex: Male

DRUGS (3)
  1. PAXIL [Suspect]
     Dosage: 50MG PER DAY
     Route: 048
     Dates: start: 20020101, end: 20030101
  2. XANAX [Concomitant]
  3. ADVIL [Concomitant]

REACTIONS (4)
  - BALANCE DISORDER [None]
  - DRUG WITHDRAWAL SYNDROME [None]
  - FEELING ABNORMAL [None]
  - LIBIDO DECREASED [None]
